FAERS Safety Report 8095874-X (Version None)
Quarter: 2012Q1

REPORT INFORMATION
  Report Type: 
  Country: None (occurrence: None)
  Receive Date: 20120129
  Receipt Date: 20111213
  Transmission Date: 20120608
  Serious: No
  Sender: FDA-Public Use
  Company Number: US-ABBOTT-11P-163-0883399-00

PATIENT
  Age: 70 Year
  Sex: Female

DRUGS (15)
  1. LISINOPRIL [Concomitant]
     Indication: HYPERTENSION
     Route: 048
     Dates: start: 20060101
  2. HUMIRA [Suspect]
     Dates: start: 20111215
  3. ENJUVIA [Concomitant]
     Indication: OESTROGEN REPLACEMENT THERAPY
     Route: 048
  4. CALCIUM CARBONATE [Concomitant]
     Indication: MINERAL SUPPLEMENTATION
     Route: 048
  5. LORATADINE [Concomitant]
     Indication: HYPERSENSITIVITY
     Route: 048
     Dates: start: 20110101
  6. CRESTOR [Concomitant]
     Indication: BLOOD CHOLESTEROL INCREASED
     Route: 048
     Dates: start: 20110101
  7. VITAMIN D [Concomitant]
     Indication: VITAMIN SUPPLEMENTATION
  8. OMEPRAZOLE [Concomitant]
     Indication: GASTROOESOPHAGEAL REFLUX DISEASE
     Route: 048
  9. ASPIRIN [Concomitant]
     Indication: PROPHYLAXIS
     Dosage: LOW DOSE
     Route: 048
  10. ISOSORBIDE MONO [Concomitant]
     Indication: HYPERTENSION
     Route: 048
     Dates: start: 20110101
  11. HUMIRA [Suspect]
     Indication: PSORIASIS
     Dates: start: 20111208
  12. HUMIRA [Suspect]
  13. GLIMEPIRIDE [Concomitant]
     Indication: DIABETES MELLITUS
     Route: 048
     Dates: start: 20090101
  14. CYANOCOBALAMIN [Concomitant]
     Indication: VITAMIN B COMPLEX DEFICIENCY
     Dosage: 3/35/2MG
     Route: 048
     Dates: start: 20100101
  15. SYNTHROID [Concomitant]
     Indication: HYPOTHYROIDISM
     Route: 048
     Dates: start: 20110101

REACTIONS (1)
  - INJECTION SITE PAIN [None]
